FAERS Safety Report 6230661-6 (Version None)
Quarter: 2009Q2

REPORT INFORMATION
  Report Type: 
  Country: None (occurrence: None)
  Receive Date: 20090611
  Receipt Date: 20090529
  Transmission Date: 20091009
  Serious: Yes (Hospitalization, Other)
  Sender: FDA-Public Use
  Company Number: 230009K09FRA

PATIENT
  Age: 44 Year
  Sex: Female

DRUGS (2)
  1. REBIF [Suspect]
     Dosage: 22 MCG
     Dates: start: 20000101, end: 20090317
  2. REBIF [Suspect]

REACTIONS (8)
  - DERMATITIS [None]
  - EYE INFLAMMATION [None]
  - INJECTION SITE ABSCESS [None]
  - INJECTION SITE ERYTHEMA [None]
  - INJECTION SITE NECROSIS [None]
  - MASS [None]
  - MULTIPLE SCLEROSIS RELAPSE [None]
  - STAPHYLOCOCCAL INFECTION [None]
